FAERS Safety Report 6565806-1 (Version None)
Quarter: 2010Q1

REPORT INFORMATION
  Report Type: 
  Country: None (occurrence: None)
  Receive Date: 20100201
  Receipt Date: 20091005
  Transmission Date: 20100710
  Serious: No
  Sender: FDA-Public Use
  Company Number: US-ABBOTT-09P-163-0601416-00

PATIENT
  Sex: Male
  Weight: 83.536 kg

DRUGS (4)
  1. LUPRON DEPOT [Suspect]
     Indication: PROSTATE CANCER
     Dates: start: 20090511
  2. FLOMAX [Concomitant]
     Indication: PROSTATISM
  3. AVODART [Concomitant]
     Indication: PROSTATE CANCER
  4. PHENAZOPYRIDINE HCL TAB [Concomitant]
     Indication: DYSURIA

REACTIONS (1)
  - PROCEDURAL COMPLICATION [None]
